FAERS Safety Report 25733471 (Version 1)
Quarter: 2025Q3

REPORT INFORMATION
  Report Type: Spontaneous
  Country: US (occurrence: US)
  Receive Date: 20250828
  Receipt Date: 20250828
  Transmission Date: 20251020
  Serious: Yes (Other)
  Sender: AMGEN
  Company Number: US-AMGEN-USASP2025168156

PATIENT
  Age: 18 Year
  Sex: Male

DRUGS (1)
  1. OTEZLA [Suspect]
     Active Substance: APREMILAST
     Indication: Psoriatic arthropathy
     Dosage: 30 MILLIGRAM, BID
     Route: 048
     Dates: start: 20250801

REACTIONS (3)
  - Suicide attempt [Recovering/Resolving]
  - Skin laceration [Recovering/Resolving]
  - Wound haemorrhage [Recovering/Resolving]

NARRATIVE: CASE EVENT DATE: 20250820
